FAERS Safety Report 15598001 (Version 3)
Quarter: 2020Q2

REPORT INFORMATION
  Report Type: Report from Study
  Country: US (occurrence: US)
  Receive Date: 20181108
  Receipt Date: 20200629
  Transmission Date: 20200713
  Serious: Yes (Other)
  Sender: FDA-Public Use
  Company Number: US-MYLANLABS-2018M1013254

PATIENT
  Sex: Female
  Weight: 117.9 kg

DRUGS (1)
  1. GLATIRAMER ACETATE INJECTION [Suspect]
     Active Substance: GLATIRAMER ACETATE
     Indication: RELAPSING-REMITTING MULTIPLE SCLEROSIS
     Dosage: 40 MILLIGRAM, 3XW
     Route: 058

REACTIONS (19)
  - Loss of personal independence in daily activities [Unknown]
  - Drug ineffective [Unknown]
  - Bedridden [Unknown]
  - Paraesthesia [Unknown]
  - Asthenia [Unknown]
  - Deafness [Unknown]
  - Limb discomfort [Unknown]
  - Dizziness [Unknown]
  - Ear pain [Unknown]
  - Back pain [Unknown]
  - Ear infection [Unknown]
  - Spinal pain [Unknown]
  - Malaise [Unknown]
  - Injection site mass [Unknown]
  - Injection site bruising [Unknown]
  - Pain in extremity [Unknown]
  - Hypoaesthesia [Unknown]
  - Condition aggravated [Unknown]
  - Memory impairment [Unknown]
